FAERS Safety Report 17060387 (Version 1)
Quarter: 2019Q4

REPORT INFORMATION
  Report Type: Spontaneous
  Country: US (occurrence: US)
  Receive Date: 20191121
  Receipt Date: 20191121
  Transmission Date: 20200122
  Serious: No
  Sender: FDA-Public Use
  Company Number: US-MATRIXX INITIATIVES, INC.-2077093

PATIENT
  Age: 57 Year
  Sex: Female
  Weight: 86.36 kg

DRUGS (4)
  1. ZICAM COLD REMEDY NASAL SPRAY [Suspect]
     Active Substance: HOMEOPATHICS
     Indication: NASOPHARYNGITIS
     Route: 045
     Dates: start: 20191116, end: 20191118
  2. VITAMIN C [Concomitant]
     Active Substance: ASCORBIC ACID
  3. OREGANO. [Concomitant]
     Active Substance: OREGANO
  4. GARLIC. [Concomitant]
     Active Substance: GARLIC

REACTIONS (1)
  - Anosmia [Recovered/Resolved]
